FAERS Safety Report 4488775-7 (Version None)
Quarter: 2004Q4

REPORT INFORMATION
  Report Type: 
  Country: None (occurrence: None)
  Receive Date: 20041029
  Receipt Date: 20041019
  Transmission Date: 20050328
  Serious: Yes (Hospitalization)
  Sender: FDA-Public Use
  Company Number: US-JNJFOC-20041006383

PATIENT
  Sex: Male
  Weight: 70.31 kg

DRUGS (5)
  1. REMICADE [Suspect]
     Route: 042
  2. REMICADE [Suspect]
     Indication: RHEUMATOID ARTHRITIS
     Route: 042
  3. PREDNISONE [Concomitant]
  4. FLOMAX [Concomitant]
  5. MULTIVITAMIN [Concomitant]

REACTIONS (1)
  - TRIPLE VESSEL BYPASS GRAFT [None]
